FAERS Safety Report 5621325-8 (Version None)
Quarter: 2008Q1

REPORT INFORMATION
  Report Type: 
  Country: None (occurrence: None)
  Receive Date: 20080211
  Receipt Date: 20080130
  Transmission Date: 20080703
  Serious: Yes (Hospitalization, Other)
  Sender: FDA-Public Use
  Company Number: DE-BAYER-200710676BVD

PATIENT
  Age: 81 Year
  Sex: Female
  Weight: 60 kg

DRUGS (10)
  1. AVELOX [Suspect]
     Indication: INFECTION
     Dosage: TOTAL DAILY DOSE: 400 MG  UNIT DOSE: 400 MG
     Route: 048
     Dates: start: 20070606, end: 20070611
  2. MARCUMAR [Concomitant]
     Indication: DRUG USE FOR UNKNOWN INDICATION
     Route: 065
  3. CORDAREX [Concomitant]
     Indication: DRUG USE FOR UNKNOWN INDICATION
     Route: 065
  4. THYREOSTATIC DRUG (UNSPECIFIED) [Concomitant]
     Indication: HYPERTHYROIDISM
     Route: 065
  5. LOW-MOLECULAR HEPARIN [Concomitant]
     Indication: DRUG USE FOR UNKNOWN INDICATION
     Route: 065
  6. MEROPENEM [Concomitant]
     Indication: INFECTION
     Route: 065
  7. MAGNESIUM [Concomitant]
     Indication: ELECTROCARDIOGRAM QT PROLONGED
     Route: 065
  8. POTASSIUM CHLORIDE [Concomitant]
     Indication: HYPOKALAEMIA
     Route: 065
  9. BETA-BLOCKER (UNSPECIFIED) [Concomitant]
     Indication: ARRHYTHMIA
     Route: 065
  10. TORSEMIDE [Concomitant]
     Indication: RESPIRATORY FAILURE
     Route: 065

REACTIONS (5)
  - ELECTROCARDIOGRAM QT PROLONGED [None]
  - HEPATIC ENZYME INCREASED [None]
  - RENAL FAILURE ACUTE [None]
  - THROMBOCYTOPENIA [None]
  - TORSADE DE POINTES [None]
